FAERS Safety Report 25132159 (Version 1)
Quarter: 2025Q1

REPORT INFORMATION
  Report Type: Spontaneous
  Country: US (occurrence: US)
  Receive Date: 20250328
  Receipt Date: 20250328
  Transmission Date: 20250409
  Serious: No
  Sender: SANOFI AVENTIS
  Company Number: US-SA-2025SA090016

PATIENT
  Sex: Female
  Weight: 88.18 kg

DRUGS (8)
  1. DUPIXENT [Suspect]
     Active Substance: DUPILUMAB
     Indication: Eosinophilic oesophagitis
     Dosage: 300 MG, QW
     Route: 058
  2. ALLEGRA ALLERGY [Concomitant]
     Active Substance: FEXOFENADINE HYDROCHLORIDE
  3. ONDANSETRON HYDROCHLORIDE [Concomitant]
     Active Substance: ONDANSETRON HYDROCHLORIDE
  4. CYCLOBENZAPRINE HYDROCHLORIDE [Concomitant]
     Active Substance: CYCLOBENZAPRINE HYDROCHLORIDE
  5. QELBREE [Concomitant]
     Active Substance: VILOXAZINE HYDROCHLORIDE
  6. QULIPTA [Concomitant]
     Active Substance: ATOGEPANT
  7. UBRELVY [Concomitant]
     Active Substance: UBROGEPANT
  8. ENBREL [Concomitant]
     Active Substance: ETANERCEPT

REACTIONS (1)
  - Dry eye [Not Recovered/Not Resolved]
